FAERS Safety Report 8162275-5 (Version None)
Quarter: 2012Q1

REPORT INFORMATION
  Report Type: 
  Country: None (occurrence: None)
  Receive Date: 20120224
  Receipt Date: 20120131
  Transmission Date: 20120608
  Serious: No
  Sender: FDA-Public Use
  Company Number: US-ROXANE LABORATORIES, INC.-2012-RO-00698RO

PATIENT
  Age: 49 Year
  Sex: Female

DRUGS (1)
  1. CODEINE SUL TAB [Suspect]

REACTIONS (1)
  - VOMITING [None]
